FAERS Safety Report 5750148 (Version 4)
Quarter: 2020Q3

REPORT INFORMATION
  Report Type: Report from Study
  Country: DE (occurrence: DE)
  Receive Date: 20050303
  Receipt Date: 20060403
  Transmission Date: 20201104
  Serious: Yes (Death, Life-Threatening)
  Sender: FDA-Public Use
  Company Number: DE-JNJFOC-20050205621

PATIENT
  Age: 79 Year
  Sex: Male

DRUGS (7)
  1. REOPRO [Suspect]
     Active Substance: ABCIXIMAB
     Route: 042
  2. REOPRO [Suspect]
     Active Substance: ABCIXIMAB
     Route: 042
  3. METOPROLOL. [Concomitant]
     Active Substance: METOPROLOL
     Route: 042
  4. PANTOPRAZOLE SODIUM. [Concomitant]
     Active Substance: PANTOPRAZOLE SODIUM
     Route: 042
  5. HAES 6% [Concomitant]
     Route: 042
  6. SODIUM CHLORIDE. [Concomitant]
     Active Substance: SODIUM CHLORIDE
     Route: 042
  7. THIAMINE HYDROCHLORIDE. [Concomitant]
     Active Substance: THIAMINE HYDROCHLORIDE
     Route: 042

REACTIONS (6)
  - Drug interaction [None]
  - Atrial fibrillation [None]
  - Cardiac arrest [None]
  - Ventricular tachycardia [None]
  - Blood pressure increased [None]
  - Haemorrhage intracranial [Fatal]

NARRATIVE: CASE EVENT DATE: 20050221
